FAERS Safety Report 6121656-1 (Version None)
Quarter: 2009Q1

REPORT INFORMATION
  Report Type: 
  Country: None (occurrence: None)
  Receive Date: 20090313
  Receipt Date: 20090310
  Transmission Date: 20090719
  Serious: Yes (Hospitalization)
  Sender: FDA-Public Use
  Company Number: 1000003722

PATIENT
  Age: 51 Year
  Sex: Male

DRUGS (7)
  1. LEXAPRO [Suspect]
     Indication: DEPRESSION
     Dosage: 10 MG (10MG, 1 IN 1 D), ORAL
     Route: 048
     Dates: start: 20080601, end: 20080901
  2. LEXAPRO [Suspect]
     Indication: DEPRESSION
     Dosage: 20 MG (20 MG, 1 IN  1 D), ORAL
     Route: 048
     Dates: start: 20080901, end: 20081010
  3. RITALIN [Suspect]
     Indication: ATTENTION DEFICIT/HYPERACTIVITY DISORDER
     Dates: start: 20051112
  4. KLONOPIN [Suspect]
     Indication: ANXIETY
     Dosage: 2 MG (0.5 MG, 4 IN 1 D), ORAL
     Route: 048
  5. INDERDAL [Concomitant]
  6. LOTENSION [Concomitant]
  7. ALLEGRA D 24 HOUR [Concomitant]

REACTIONS (3)
  - DRUG INTERACTION [None]
  - DYSARTHRIA [None]
  - HYPERTENSION [None]
